FAERS Safety Report 8833884 (Version 1)
Quarter: 2012Q4

REPORT INFORMATION
  Report Type: 
  Country: US (occurrence: US)
  Receive Date: 20121010
  Receipt Date: 20121010
  Transmission Date: 20130627
  Serious: Yes (Hospitalization, Other)
  Sender: FDA-Public Use
  Company Number: CHPA2012US021009

PATIENT
  Age: 67 Year
  Sex: Female

DRUGS (1)
  1. ALPHA-KERI MOISTURE RICH OIL [Suspect]
     Indication: BALNEOTHERAPY
     Route: 061
     Dates: start: 1982, end: 201209

REACTIONS (5)
  - Dyspnoea [Recovered/Resolved]
  - Hypersensitivity [Recovered/Resolved]
  - Rash [Not Recovered/Not Resolved]
  - Throat irritation [Not Recovered/Not Resolved]
  - Cough [Not Recovered/Not Resolved]
